FAERS Safety Report 12697103 (Version 2)
Quarter: 2016Q3

REPORT INFORMATION
  Report Type: Report from Study
  Country: US (occurrence: US)
  Receive Date: 20160830
  Receipt Date: 20160915
  Transmission Date: 20161109
  Serious: Yes (Hospitalization, Other)
  Sender: FDA-Public Use
  Company Number: US-ROCHE-1819169

PATIENT
  Age: 77 Year
  Sex: Female
  Weight: 64.47 kg

DRUGS (19)
  1. LEVOTHYROXINE. [Concomitant]
     Active Substance: LEVOTHYROXINE
     Route: 048
  2. PROPRANOLOL [Concomitant]
     Active Substance: PROPRANOLOL\PROPRANOLOL HYDROCHLORIDE
     Route: 048
  3. ALBUTEROL. [Concomitant]
     Active Substance: ALBUTEROL
     Indication: ASTHMA
     Dosage: ONCE A DAY
     Route: 065
  4. ANODYNE [Concomitant]
     Indication: PAIN IN EXTREMITY
  5. BROVANA [Concomitant]
     Active Substance: ARFORMOTEROL TARTRATE
     Dosage: TWICE A DAY
     Route: 065
  6. IPRATROPIUM [Concomitant]
     Active Substance: IPRATROPIUM
     Indication: ASTHMA
  7. XOLAIR [Suspect]
     Active Substance: OMALIZUMAB
     Indication: ASTHMA
     Dosage: ONE 150 MG INJECTION IN EACH ARM EVERY 28 DAYS
     Route: 058
     Dates: start: 20060801
  8. COMBIVENT RESPIMAT [Concomitant]
     Active Substance: ALBUTEROL SULFATE\IPRATROPIUM BROMIDE
     Indication: ASTHMA
  9. PREDNISONE. [Concomitant]
     Active Substance: PREDNISONE
     Route: 048
  10. OXYGEN. [Concomitant]
     Active Substance: OXYGEN
     Indication: EMPHYSEMA
     Dosage: 2 LITERS 24 HOURS A DAY
     Route: 065
  11. ALPRAZOLAM. [Concomitant]
     Active Substance: ALPRAZOLAM
     Indication: TREMOR
     Route: 048
  12. BUDESONIDE. [Concomitant]
     Active Substance: BUDESONIDE
     Indication: ASTHMA
     Dosage: TWO TIMES A DAY
     Route: 065
  13. DIBUCAINE. [Concomitant]
     Active Substance: DIBUCAINE
     Route: 061
  14. FLUTICASONE [Concomitant]
     Active Substance: FLUTICASONE\FLUTICASONE PROPIONATE
     Indication: SEASONAL ALLERGY
     Route: 065
  15. ASTEPRO [Concomitant]
     Active Substance: AZELASTINE HYDROCHLORIDE
     Dosage: DAILY
     Route: 045
  16. CINNAMON. [Concomitant]
     Active Substance: CINNAMON
     Dosage: ONE CAPSULE TWICE A DAY
     Route: 048
  17. FLAXSEED [Concomitant]
     Active Substance: FLAX SEED
     Route: 065
  18. POTASSIUM CHLORIDE. [Concomitant]
     Active Substance: POTASSIUM CHLORIDE
     Route: 048
  19. OMEPRAZOLE. [Concomitant]
     Active Substance: OMEPRAZOLE
     Route: 048

REACTIONS (30)
  - Sinusitis [Unknown]
  - Back pain [Not Recovered/Not Resolved]
  - Gastric disorder [Unknown]
  - Myalgia [Not Recovered/Not Resolved]
  - Chest injury [Unknown]
  - Emphysema [Unknown]
  - Urinary tract infection [Recovered/Resolved]
  - Streptococcal infection [Unknown]
  - Dyspnoea [Not Recovered/Not Resolved]
  - Colitis ischaemic [Unknown]
  - Wrist fracture [Unknown]
  - Confusional state [Unknown]
  - Life support [Recovered/Resolved]
  - Amnesia [Unknown]
  - Chronic obstructive pulmonary disease [Unknown]
  - Tremor [Unknown]
  - Pharyngitis streptococcal [Recovered/Resolved]
  - Asthma [Unknown]
  - Pain in extremity [Unknown]
  - Ill-defined disorder [Not Recovered/Not Resolved]
  - Aortic aneurysm [Unknown]
  - Breast injury [Unknown]
  - Pruritus [Unknown]
  - Muscular weakness [Unknown]
  - Malaise [Not Recovered/Not Resolved]
  - Pneumonia [Recovered/Resolved]
  - Coma [Recovered/Resolved]
  - Fall [Unknown]
  - Burning sensation [Not Recovered/Not Resolved]
  - Ill-defined disorder [Unknown]

NARRATIVE: CASE EVENT DATE: 20130801
